FAERS Safety Report 9650533 (Version 1)
Quarter: 2013Q4

REPORT INFORMATION
  Report Type: Spontaneous
  Country: IT (occurrence: IT)
  Receive Date: 20131029
  Receipt Date: 20131029
  Transmission Date: 20140711
  Serious: Yes (Hospitalization)
  Sender: FDA-Public Use
  Company Number: IT-ASTRAZENECA-2013SE77363

PATIENT
  Age: 14430 Day
  Sex: Male
  Weight: 90 kg

DRUGS (2)
  1. BRILIQUE [Suspect]
     Indication: ACUTE CORONARY SYNDROME
     Route: 048
     Dates: start: 20130415, end: 20131007
  2. CARDIOASPIRIN [Concomitant]

REACTIONS (1)
  - Pancytopenia [Recovering/Resolving]
